FAERS Safety Report 9754591 (Version 1)
Quarter: 2013Q4

REPORT INFORMATION
  Report Type: Spontaneous
  Country: US (occurrence: US)
  Receive Date: 20131213
  Receipt Date: 20131213
  Transmission Date: 20140711
  Serious: Yes (Other)
  Sender: FDA-Public Use
  Company Number: US-PFIZER INC-2013355472

PATIENT
  Sex: Female

DRUGS (1)
  1. LYRICA [Suspect]
     Dosage: UNK

REACTIONS (7)
  - Depression [Unknown]
  - Fibromyalgia [Unknown]
  - Asthenia [Unknown]
  - Pain [Unknown]
  - Myalgia [Unknown]
  - Paraesthesia [Unknown]
  - Fatigue [Unknown]
